FAERS Safety Report 5199667-2 (Version None)
Quarter: 2007Q1

REPORT INFORMATION
  Report Type: 
  Country: None (occurrence: None)
  Receive Date: 20070103
  Receipt Date: 20070103
  Transmission Date: 20070707
  Serious: Yes (Other)
  Sender: FDA-Public Use
  Company Number: None

PATIENT
  Age: 53 Year
  Sex: Female
  Weight: 56 kg

DRUGS (1)
  1. AMOXICILLIN + CLAVULANATE POTASSIUM [Suspect]
     Indication: SINUSITIS
     Dosage: 875/125MG   BID   PO
     Route: 048
     Dates: start: 20061128, end: 20061218

REACTIONS (6)
  - ABDOMINAL PAIN LOWER [None]
  - CHROMATURIA [None]
  - JAUNDICE [None]
  - NAUSEA [None]
  - PRURITUS [None]
  - VOMITING [None]
